FAERS Safety Report 5233423-1 (Version None)
Quarter: 2007Q1

REPORT INFORMATION
  Report Type: 
  Country: None (occurrence: None)
  Receive Date: 20070206
  Receipt Date: 20070125
  Transmission Date: 20070707
  Serious: Yes (Death)
  Sender: FDA-Public Use
  Company Number: 200701AGG00572

PATIENT
  Age: 87 Year
  Sex: Female

DRUGS (5)
  1. AGGRASTAT [Suspect]
     Indication: ACUTE MYOCARDIAL INFARCTION
     Dosage: (18 ML (18 ML X 1) INTRAVENOUS BOLUS), (211.5 ML (211.5 ML FOR 24 HOURS) INTRAVENOUS DRIP)
     Dates: start: 20061229, end: 20061229
  2. AGGRASTAT [Suspect]
     Indication: ACUTE MYOCARDIAL INFARCTION
     Dosage: (18 ML (18 ML X 1) INTRAVENOUS BOLUS), (211.5 ML (211.5 ML FOR 24 HOURS) INTRAVENOUS DRIP)
     Dates: start: 20061229, end: 20061229
  3. ALBYL-E [Concomitant]
  4. PLAVIX /01220702/ [Concomitant]
  5. KLEXANE /01708202/ [Concomitant]

REACTIONS (3)
  - ACUTE MYOCARDIAL INFARCTION [None]
  - CEREBRAL HAEMORRHAGE [None]
  - HAEMOPTYSIS [None]
